FAERS Safety Report 5831431-0 (Version None)
Quarter: 2008Q3

REPORT INFORMATION
  Report Type: 
  Country: None (occurrence: None)
  Receive Date: 20080801
  Receipt Date: 20080722
  Transmission Date: 20090109
  Serious: Yes (Hospitalization)
  Sender: FDA-Public Use
  Company Number: HU-PFIZER INC-2008056310

PATIENT
  Age: 53 Year
  Sex: Female

DRUGS (6)
  1. SERTRALINE [Suspect]
     Indication: BIPOLAR DISORDER
  2. LAMOTRIGINE [Suspect]
     Indication: BIPOLAR DISORDER
  3. ACE INHIBITOR NOS [Concomitant]
     Indication: HYPERTENSION
  4. ATORVASTATIN [Concomitant]
  5. RISPERIDONE [Concomitant]
     Indication: BIPOLAR DISORDER
  6. IMOVANE [Concomitant]

REACTIONS (2)
  - ERYTHEMA MULTIFORME [None]
  - STEVENS-JOHNSON SYNDROME [None]
